FAERS Safety Report 9030336 (Version 2)
Quarter: 2013Q1

REPORT INFORMATION
  Report Type: Spontaneous
  Country: US (occurrence: US)
  Receive Date: 20130122
  Receipt Date: 20130313
  Transmission Date: 20140127
  Serious: Yes (Other)
  Sender: FDA-Public Use
  Company Number: US-PFIZER INC-2013022604

PATIENT
  Age: 66 Year
  Sex: Female
  Weight: 84.81 kg

DRUGS (7)
  1. LYRICA [Suspect]
     Indication: FIBROMYALGIA
     Dosage: 50 MG, UNK
     Dates: start: 2007
  2. LYRICA [Suspect]
     Indication: PAIN
     Dosage: 100 MG, 1X/DAY
     Dates: start: 2007
  3. LYRICA [Suspect]
     Indication: NEUROPATHY PERIPHERAL
     Dosage: 75 MG, 1X/DAY
     Dates: start: 201212
  4. LYRICA [Suspect]
     Dosage: 75 MG, 4X/DAY
  5. LYRICA [Suspect]
     Dosage: 50 MG, 4X/DAY
  6. OXYCODONE [Concomitant]
     Dosage: UNK
  7. CALCIUM [Concomitant]
     Dosage: UNK

REACTIONS (15)
  - Neuropathy peripheral [Not Recovered/Not Resolved]
  - Peripheral motor neuropathy [Not Recovered/Not Resolved]
  - Anxiety [Unknown]
  - Nausea [Unknown]
  - Pain [Not Recovered/Not Resolved]
  - Dyskinesia [Unknown]
  - Grip strength decreased [Unknown]
  - Peripheral sensory neuropathy [Not Recovered/Not Resolved]
  - Fear [Not Recovered/Not Resolved]
  - Diplopia [Not Recovered/Not Resolved]
  - Visual impairment [Not Recovered/Not Resolved]
  - Body height decreased [Not Recovered/Not Resolved]
  - Skin disorder [Not Recovered/Not Resolved]
  - Emotional poverty [Not Recovered/Not Resolved]
  - Drug withdrawal syndrome [Not Recovered/Not Resolved]
